FAERS Safety Report 14940959 (Version 1)
Quarter: 2018Q2

REPORT INFORMATION
  Report Type: Spontaneous
  Country: IE (occurrence: IE)
  Receive Date: 20180525
  Receipt Date: 20180525
  Transmission Date: 20180711
  Serious: Yes (Other)
  Sender: FDA-Public Use
  Company Number: IE-BIOGEN-2018BI00582364

PATIENT
  Age: 35 Year
  Sex: Female

DRUGS (2)
  1. TYSABRI [Suspect]
     Active Substance: NATALIZUMAB
     Indication: PRODUCT USED FOR UNKNOWN INDICATION
     Route: 065
  2. GILENYA [Concomitant]
     Active Substance: FINGOLIMOD HYDROCHLORIDE
     Indication: MULTIPLE SCLEROSIS
     Dosage: UNK, QD
     Route: 048
     Dates: start: 20140724, end: 20161026

REACTIONS (16)
  - White blood cell count decreased [Unknown]
  - Inflammation [Unknown]
  - Gamma-glutamyltransferase increased [Recovered/Resolved]
  - Hypertension [Unknown]
  - Neuralgia [Recovered/Resolved]
  - Melanocytic naevus [Unknown]
  - Chest discomfort [Recovered/Resolved]
  - Urinary tract infection [Unknown]
  - Alanine aminotransferase increased [Unknown]
  - Alopecia [Unknown]
  - Multiple sclerosis relapse [Recovered/Resolved]
  - Constipation [Unknown]
  - Pain [Unknown]
  - Vulvovaginal pain [Recovered/Resolved]
  - Vulvovaginal burning sensation [Recovered/Resolved]
  - Gastritis [Unknown]

NARRATIVE: CASE EVENT DATE: 20141106
